FAERS Safety Report 21347591 (Version 1)
Quarter: 2022Q3

REPORT INFORMATION
  Report Type: Report from Study
  Country: DZ (occurrence: DZ)
  Receive Date: 20220919
  Receipt Date: 20220919
  Transmission Date: 20221026
  Serious: Yes (Death, Hospitalization)
  Sender: FDA-Public Use
  Company Number: DZ-BAYER-2022A127534

PATIENT
  Age: 22 Year
  Sex: Male

DRUGS (1)
  1. VENTAVIS [Suspect]
     Active Substance: ILOPROST
     Indication: Pulmonary arterial hypertension
     Dosage: TWO TO THREE VIALS OF 2 ML
     Route: 055
     Dates: start: 202102

REACTIONS (2)
  - Death [Fatal]
  - Hospitalisation [Unknown]
